FAERS Safety Report 5583217-2 (Version None)
Quarter: 2008Q1

REPORT INFORMATION
  Report Type: 
  Country: None (occurrence: None)
  Receive Date: 20080103
  Receipt Date: 20080103
  Transmission Date: 20080703
  Serious: Yes (Hospitalization)
  Sender: FDA-Public Use
  Company Number: None

PATIENT
  Age: 60 Year
  Sex: Female

DRUGS (3)
  1. WARFARIN SODIUM [Suspect]
     Indication: CEREBROVASCULAR ACCIDENT
     Dosage: 3MG   DAILY  PO
     Route: 048
  2. ANTIBIOTIC, UNSPECIFIED [Suspect]
     Indication: BRONCHITIS
  3. ANTIBIOTIC, UNSPECIFIED [Suspect]
     Indication: SINUSITIS

REACTIONS (6)
  - BRONCHITIS [None]
  - COUGH [None]
  - HAEMOGLOBIN DECREASED [None]
  - INTERNATIONAL NORMALISED RATIO INCREASED [None]
  - MUSCLE HAEMORRHAGE [None]
  - SINUSITIS [None]
